FAERS Safety Report 22244631 (Version 1)
Quarter: 2023Q2

REPORT INFORMATION
  Report Type: Spontaneous
  Country: US (occurrence: None)
  Receive Date: 20230420
  Receipt Date: 20230420
  Transmission Date: 20230721
  Serious: Yes (Other)
  Sender: FDA-Public Use
  Company Number: None

PATIENT
  Age: 0 Year
  Sex: Male
  Weight: 2.36 kg

DRUGS (4)
  1. HEADACHE RELIEF [Suspect]
     Active Substance: ACETAMINOPHEN\ASPIRIN\CAFFEINE
     Indication: Migraine
     Dosage: FREQUENCY : AS NEEDED;?
     Route: 048
  2. TYLENOL [Suspect]
     Active Substance: ACETAMINOPHEN
     Dosage: FREQUENCY : AS DIRECTED;?
     Route: 048
  3. ESGIC [Suspect]
     Active Substance: ACETAMINOPHEN\BUTALBITAL\CAFFEINE
     Indication: Migraine
     Dosage: FREQUENCY : AS NEEDED;?
     Route: 048
     Dates: start: 20221013
  4. EXCEDRIN MIGRAINE [Suspect]
     Active Substance: ACETAMINOPHEN\ASPIRIN\CAFFEINE
     Indication: Migraine
     Dosage: FREQUENCY : AS NEEDED;?
     Route: 048
     Dates: start: 20221025

REACTIONS (3)
  - Delivery [None]
  - Normal newborn [None]
  - Foetal exposure during pregnancy [None]

NARRATIVE: CASE EVENT DATE: 20230307
